FAERS Safety Report 12182522 (Version 2)
Quarter: 2016Q3

REPORT INFORMATION
  Report Type: Spontaneous
  Country: FR (occurrence: FR)
  Receive Date: 20160316
  Receipt Date: 20160901
  Transmission Date: 20161109
  Serious: Yes (Death, Hospitalization, Other)
  Sender: FDA-Public Use
  Company Number: FR-GLAXOSMITHKLINE-FR2016GSK034591

PATIENT
  Age: 75 Year
  Sex: Female

DRUGS (10)
  1. ATGAM [Suspect]
     Active Substance: EQUINE THYMOCYTE IMMUNE GLOBULIN
     Indication: AUTOIMMUNE PANCYTOPENIA
     Dosage: UNK
     Dates: start: 20160106, end: 20160110
  2. POSACONAZOLE [Suspect]
     Active Substance: POSACONAZOLE
     Indication: INFECTION
     Dosage: UNK
     Dates: start: 20160131
  3. AMLOR [Concomitant]
     Active Substance: AMLODIPINE BESYLATE
     Dosage: UNK
     Dates: start: 201602
  4. CICLOSPORIN [Suspect]
     Active Substance: CYCLOSPORINE
     Indication: AUTOIMMUNE PANCYTOPENIA
     Dosage: UNK
     Dates: start: 20160106, end: 20160217
  5. SOLUPRED [Concomitant]
     Active Substance: PREDNISOLONE
  6. GRANOCYTE [Concomitant]
     Active Substance: LENOGRASTIM
     Dosage: UNK
     Dates: start: 201602
  7. RAMIPRIL. [Concomitant]
     Active Substance: RAMIPRIL
     Dosage: UNK
     Dates: end: 201602
  8. CEFTRIAXONE SODIUM. [Concomitant]
     Active Substance: CEFTRIAXONE SODIUM
     Dosage: UNK
     Dates: start: 20160211, end: 20160217
  9. ZELITREX [Suspect]
     Active Substance: VALACYCLOVIR HYDROCHLORIDE
     Indication: INFECTION
     Dosage: UNK
     Route: 048
     Dates: start: 20160131
  10. INEXIUM [Concomitant]
     Active Substance: ESOMEPRAZOLE
     Dosage: UNK
     Dates: start: 20160106

REACTIONS (6)
  - Hypoxia [Fatal]
  - Rash erythematous [Unknown]
  - Septic shock [Fatal]
  - Quadriplegia [Unknown]
  - Rash maculo-papular [Unknown]
  - Renal disorder [Unknown]

NARRATIVE: CASE EVENT DATE: 20160201
